FAERS Safety Report 9432445 (Version 1)
Quarter: 2013Q3

REPORT INFORMATION
  Report Type: Spontaneous
  Country: US (occurrence: US)
  Receive Date: 20130731
  Receipt Date: 20130731
  Transmission Date: 20140515
  Serious: Yes (Hospitalization)
  Sender: FDA-Public Use
  Company Number: US-JNJFOC-20130714716

PATIENT
  Age: 60 Year
  Sex: Male

DRUGS (3)
  1. XARELTO [Suspect]
     Indication: CEREBROVASCULAR ACCIDENT PROPHYLAXIS
     Route: 048
     Dates: start: 20130609
  2. XARELTO [Suspect]
     Indication: ATRIAL FIBRILLATION
     Route: 048
     Dates: start: 20130609
  3. HEPARIN [Suspect]
     Indication: PULMONARY EMBOLISM
     Route: 065

REACTIONS (4)
  - Renal failure acute [Unknown]
  - Pulmonary embolism [Unknown]
  - Pericardial effusion [Unknown]
  - Cardiac tamponade [Unknown]
